FAERS Safety Report 4582822-X (Version None)
Quarter: 2005Q1

REPORT INFORMATION
  Report Type: 
  Country: None (occurrence: None)
  Receive Date: 20050121
  Receipt Date: 20040906
  Transmission Date: 20050727
  Serious: Yes (Other)
  Sender: FDA-Public Use
  Company Number: 2004067928

PATIENT
  Sex: Female

DRUGS (1)
  1. RELPAX [Suspect]
     Indication: ILL-DEFINED DISORDER
     Dosage: (40 MG)

REACTIONS (1)
  - LARYNGEAL OEDEMA [None]
